FAERS Safety Report 19489884 (Version 3)
Quarter: 2023Q4

REPORT INFORMATION
  Report Type: Spontaneous
  Country: US (occurrence: US)
  Receive Date: 20210704
  Receipt Date: 20231106
  Transmission Date: 20240110
  Serious: Yes (Hospitalization, Disabling, Other)
  Sender: FDA-Public Use
  Company Number: US-PFIZER INC-2021767338

PATIENT
  Age: 50 Year
  Sex: Female

DRUGS (1)
  1. ENBREL [Suspect]
     Active Substance: ETANERCEPT
     Indication: Rheumatoid arthritis
     Dosage: UNK
     Route: 065

REACTIONS (7)
  - Cardiac disorder [Unknown]
  - Lung disorder [Unknown]
  - Drug hypersensitivity [Unknown]
  - Cough [Unknown]
  - Sinusitis [Unknown]
  - Bronchitis [Unknown]
  - Pneumonia [Unknown]
